FAERS Safety Report 4665080-7 (Version None)
Quarter: 2005Q2

REPORT INFORMATION
  Report Type: 
  Country: None (occurrence: None)
  Receive Date: 20050517
  Receipt Date: 20050427
  Transmission Date: 20051028
  Serious: Yes (Death, Hospitalization, Other)
  Sender: FDA-Public Use
  Company Number: JP_050506461

PATIENT
  Age: 70 Year
  Sex: Male
  Weight: 63 kg

DRUGS (4)
  1. VINBLASTINE SULFATE [Suspect]
     Indication: BLADDER CANCER
     Dosage: 5 MG OTHER
     Route: 050
     Dates: start: 20010802, end: 20011101
  2. RDNA (CISPLATIN PHARMACIA) [Concomitant]
  3. ADRIACIN (DOXORUBICIN HYDROCHLORIED) [Concomitant]
  4. METHOTREXATE [Concomitant]

REACTIONS (1)
  - BONE MARROW DEPRESSION [None]
